FAERS Safety Report 8082889-0 (Version None)
Quarter: 2012Q1

REPORT INFORMATION
  Report Type: 
  Country: None (occurrence: None)
  Receive Date: 20120127
  Receipt Date: 20110125
  Transmission Date: 20120608
  Serious: Yes (Hospitalization)
  Sender: FDA-Public Use
  Company Number: US-ABBOTT-11P-163-0700591-00

PATIENT
  Age: 18 Year
  Sex: Male
  Weight: 55.842 kg

DRUGS (2)
  1. HUMIRA [Suspect]
     Indication: CROHN'S DISEASE
     Dates: start: 20101001, end: 20110101
  2. HUMIRA [Suspect]
     Dates: start: 20110101

REACTIONS (9)
  - DEHYDRATION [None]
  - INCORRECT DOSE ADMINISTERED [None]
  - CROHN'S DISEASE [None]
  - NIGHT SWEATS [None]
  - DEVICE MALFUNCTION [None]
  - INAPPROPRIATE SCHEDULE OF DRUG ADMINISTRATION [None]
  - VOMITING [None]
  - CACHEXIA [None]
  - WRONG TECHNIQUE IN DRUG USAGE PROCESS [None]
